FAERS Safety Report 8415619-0 (Version None)
Quarter: 2012Q2

REPORT INFORMATION
  Report Type: 
  Country: None (occurrence: None)
  Receive Date: 20120606
  Receipt Date: 20120522
  Transmission Date: 20120825
  Serious: Yes (Other)
  Sender: FDA-Public Use
  Company Number: DE-BRISTOL-MYERS SQUIBB COMPANY-16612921

PATIENT
  Sex: Male
  Weight: 4 kg

DRUGS (2)
  1. AMISULPRIDE [Suspect]
     Dosage: LONG TERM EXPOSURE
  2. ABILIFY [Suspect]
     Dosage: LONG TERM EXPOSURE

REACTIONS (6)
  - HYPOGLYCAEMIA NEONATAL [None]
  - CYANOSIS [None]
  - LARGE FOR DATES BABY [None]
  - CARDIAC HYPERTROPHY [None]
  - CRYPTORCHISM [None]
  - NEONATAL RESPIRATORY DISTRESS SYNDROME [None]
